FAERS Safety Report 23637491 (Version 3)
Quarter: 2024Q1

REPORT INFORMATION
  Report Type: Spontaneous
  Country: DE (occurrence: DE)
  Receive Date: 20240315
  Receipt Date: 20240327
  Transmission Date: 20240409
  Serious: Yes (Hospitalization)
  Sender: FDA-Public Use
  Company Number: DE-UCBSA-2024012660

PATIENT
  Age: 29 Year
  Sex: Female

DRUGS (13)
  1. FENFLURAMINE HYDROCHLORIDE [Suspect]
     Active Substance: FENFLURAMINE HYDROCHLORIDE
     Indication: Severe myoclonic epilepsy of infancy
     Dosage: 6.6 MG, (3 MILLILITER) 2X/DAY (BID)
     Route: 048
     Dates: start: 20240301
  2. BRIVIACT [Suspect]
     Active Substance: BRIVARACETAM
     Indication: Product used for unknown indication
     Dosage: UNK
     Dates: start: 202403, end: 202403
  3. BROMINE [Suspect]
     Active Substance: BROMINE
     Indication: Epilepsy
     Dosage: UNK
     Route: 048
  4. BROMINE [Suspect]
     Active Substance: BROMINE
     Dosage: 1-0-1
     Route: 048
  5. BROMINE [Suspect]
     Active Substance: BROMINE
     Dosage: 2550 MILLIGRAM, 2X/DAY (BID) AND THEN DOSE REDUCED ON 08-MAR-2024
     Route: 048
  6. RIVOTRIL [Suspect]
     Active Substance: CLONAZEPAM
     Indication: Product used for unknown indication
     Dosage: UNK
     Dates: start: 202401
  7. RIVOTRIL [Suspect]
     Active Substance: CLONAZEPAM
     Dosage: INCREASED DOSE
     Dates: start: 202401, end: 2024
  8. VALPROIC ACID [Concomitant]
     Active Substance: VALPROIC ACID
     Indication: Epilepsy
     Dosage: 600 MILLIGRAM, ONCE DAILY (QD), DOSE REDUCTION
     Route: 048
     Dates: end: 20240307
  9. VALPROIC ACID [Concomitant]
     Active Substance: VALPROIC ACID
     Dosage: 800 MILLIGRAM, ONCE DAILY (QD)
     Route: 048
  10. B12 ANKERMANN [Concomitant]
     Indication: Product used for unknown indication
     Dosage: 1000 MICROGRAM 1-0-0-0
  11. VALPROIC ACID [Concomitant]
     Active Substance: VALPROIC ACID
     Indication: Product used for unknown indication
     Dosage: 300 MILLIGRAM 2-0-1-0
  12. VALPROIC ACID [Concomitant]
     Active Substance: VALPROIC ACID
     Dosage: 500 MILLIGRAM PR, 0-0-1-0
  13. LEVETIRACETAM [Concomitant]
     Active Substance: LEVETIRACETAM
     Indication: Product used for unknown indication
     Dosage: 1000 MG 1-0-1-0
     Dates: end: 202403

REACTIONS (5)
  - Toxicity to various agents [Recovering/Resolving]
  - Drug ineffective [Unknown]
  - Nervous system disorder [Unknown]
  - Fatigue [Unknown]
  - Drug intolerance [Unknown]

NARRATIVE: CASE EVENT DATE: 20240301
